FAERS Safety Report 13442300 (Version 1)
Quarter: 2017Q2

REPORT INFORMATION
  Report Type: Spontaneous
  Country: US (occurrence: US)
  Receive Date: 20170413
  Receipt Date: 20170413
  Transmission Date: 20170830
  Serious: Yes (Disabling)
  Sender: FDA-Public Use
  Company Number: None

PATIENT
  Age: 25 Year
  Sex: Female
  Weight: 58.5 kg

DRUGS (1)
  1. DEPO-PROVERA [Suspect]
     Active Substance: MEDROXYPROGESTERONE ACETATE
     Indication: CONTRACEPTION
     Dosage: ?          QUANTITY:1 INJECTION(S);OTHER FREQUENCY:ONCE EVRY 3 MONTHS;?
     Route: 030
     Dates: start: 20170317

REACTIONS (3)
  - Anger [None]
  - Bipolar disorder [None]
  - Depression [None]

NARRATIVE: CASE EVENT DATE: 20170317
